FAERS Safety Report 9530880 (Version 1)
Quarter: 2013Q1

REPORT INFORMATION
  Report Type: Spontaneous
  Country: US (occurrence: None)
  Receive Date: 20130315
  Receipt Date: 20130315
  Transmission Date: 20140127
  Serious: Yes (Other)
  Sender: FDA-Public Use
  Company Number: US-JNJFOC-20120510174

PATIENT
  Age: 36 Month
  Sex: Female

DRUGS (2)
  1. CHILDREN^S MOTRIN [Suspect]
     Indication: EAR INFECTION
     Route: 048
  2. CHILDREN^S MOTRIN [Suspect]
     Indication: PYREXIA
     Route: 048

REACTIONS (1)
  - Urticaria [None]
